FAERS Safety Report 17839191 (Version 2)
Quarter: 2020Q3

REPORT INFORMATION
  Report Type: Spontaneous
  Country: CA (occurrence: CA)
  Receive Date: 20200529
  Receipt Date: 20200817
  Transmission Date: 20201103
  Serious: Yes (Hospitalization)
  Sender: FDA-Public Use
  Company Number: CA-ROCHE-2609974

PATIENT
  Age: 51 Year
  Sex: Male

DRUGS (22)
  1. RANITIDINE. [Concomitant]
     Active Substance: RANITIDINE
  2. RITUXIMAB. [Suspect]
     Active Substance: RITUXIMAB
     Indication: B-CELL LYMPHOMA
     Route: 041
  3. DALTEPARIN [Concomitant]
     Active Substance: DALTEPARIN
  4. DILAUDID [Concomitant]
     Active Substance: HYDROMORPHONE HYDROCHLORIDE
  5. SENNOSIDES. [Concomitant]
     Active Substance: SENNOSIDES
     Route: 048
  6. VINCRISTINE SULFATE. [Suspect]
     Active Substance: VINCRISTINE SULFATE
     Indication: B-CELL LYMPHOMA
     Route: 042
  7. TAMSULOSIN [Concomitant]
     Active Substance: TAMSULOSIN
     Route: 048
  8. DOXORUBICIN HYDROCHLORIDE. [Suspect]
     Active Substance: DOXORUBICIN HYDROCHLORIDE
     Indication: B-CELL LYMPHOMA
     Route: 042
  9. ALLOPURINOL. [Concomitant]
     Active Substance: ALLOPURINOL
  10. GRAVOL [Concomitant]
     Active Substance: DIMENHYDRINATE
  11. NEUPOGEN [Concomitant]
     Active Substance: FILGRASTIM
  12. METOCLOPRAMIDE. [Concomitant]
     Active Substance: METOCLOPRAMIDE
     Route: 048
  13. TYLENOL EXTRA STRENGTH [Concomitant]
     Active Substance: ACETAMINOPHEN
     Route: 048
  14. FENTANYL. [Concomitant]
     Active Substance: FENTANYL
  15. VENLAFAXINE [Concomitant]
     Active Substance: VENLAFAXINE HYDROCHLORIDE
     Route: 048
  16. VENETOCLAX. [Suspect]
     Active Substance: VENETOCLAX
     Indication: B-CELL LYMPHOMA
     Route: 048
  17. DEXAMETHASONE. [Concomitant]
     Active Substance: DEXAMETHASONE
  18. ONDANSETRON [Concomitant]
     Active Substance: ONDANSETRON
     Route: 048
  19. OXAZEPAM. [Concomitant]
     Active Substance: OXAZEPAM
     Route: 048
  20. CYCLOPHOSPHAMIDE. [Suspect]
     Active Substance: CYCLOPHOSPHAMIDE
     Indication: B-CELL LYMPHOMA
     Route: 042
  21. PREDNISONE. [Suspect]
     Active Substance: PREDNISONE
     Indication: B-CELL LYMPHOMA
     Route: 048
  22. APREPITANT. [Concomitant]
     Active Substance: APREPITANT

REACTIONS (2)
  - Pancreatitis [Recovered/Resolved]
  - Pneumonia [Recovered/Resolved]
